FAERS Safety Report 9680862 (Version 2)
Quarter: 2013Q4

REPORT INFORMATION
  Report Type: Report from Study
  Country: BE (occurrence: BE)
  Receive Date: 20131111
  Receipt Date: 20131111
  Transmission Date: 20140711
  Serious: Yes (Death)
  Sender: FDA-Public Use
  Company Number: PHHY2013BE091697

PATIENT
  Age: 63 Year
  Sex: Female

DRUGS (8)
  1. SANDOSTATIN LAR [Suspect]
     Indication: NEUROENDOCRINE TUMOUR
     Dosage: 30 MG, UNK
     Route: 030
     Dates: start: 20130816
  2. SANDOSTATIN LAR [Suspect]
     Dosage: 30 MG, UNK
     Route: 030
     Dates: start: 20131011
  3. PANTOMED//PANTOPRAZOLE SODIUM SESQUIHYDRATE [Concomitant]
     Dosage: 40 MG, QD
  4. DUROGESIC [Concomitant]
     Dosage: UNK UKN, UNK
  5. MEDROL [Concomitant]
     Dosage: 64 MG, QD
  6. TEGRETOL [Concomitant]
     Dosage: 200 MG, BID
  7. AZITHROMYCIN [Concomitant]
     Dosage: 250 MG, TID
  8. LITICAN [Concomitant]
     Indication: NAUSEA
     Dosage: 50 MG, UNK

REACTIONS (4)
  - Death [Fatal]
  - Pigmentation disorder [Unknown]
  - Rash [Not Recovered/Not Resolved]
  - Pruritus [Not Recovered/Not Resolved]
